FAERS Safety Report 24634779 (Version 1)
Quarter: 2024Q4

REPORT INFORMATION
  Report Type: Spontaneous
  Country: DE (occurrence: DE)
  Receive Date: 20241119
  Receipt Date: 20241119
  Transmission Date: 20250115
  Serious: Yes (Hospitalization, Other)
  Sender: AUROBINDO
  Company Number: DE-SAMSUNG BIOEPIS-SB-2024-32887

PATIENT
  Age: 70 Year
  Sex: Male
  Weight: 77 kg

DRUGS (6)
  1. DOCETAXEL [Suspect]
     Active Substance: DOCETAXEL
     Indication: Oesophageal adenocarcinoma
     Dosage: 78 MILLIGRAM (50 MG/M2, IV, D1/D15/D29 AND D43 PRE-AND POST OP;)
     Route: 042
     Dates: start: 20240425
  2. LEUCOVORIN [Suspect]
     Active Substance: LEUCOVORIN\LEUCOVORIN CALCIUM
     Indication: Oesophageal adenocarcinoma
     Dosage: 313 MILLIGRAM (200 MG/M2, IV, D1/D15/D29 AND D43 PRE-AND POST OP;)
     Route: 042
     Dates: start: 20240425, end: 20241017
  3. OXALIPLATIN [Suspect]
     Active Substance: OXALIPLATIN
     Indication: Oesophageal adenocarcinoma
     Dosage: 133 MILLIGRAM (85 MG/M2, IV, D1/D15/D29 AND D43 PRE-AND POST OP;)
     Route: 042
     Dates: start: 20240425, end: 20241017
  4. FLUOROURACIL [Suspect]
     Active Substance: FLUOROURACIL
     Indication: Oesophageal adenocarcinoma
     Dosage: 4000 MILLIGRAM (2600 MG/M2, IV, D1/D15/D29 AND D43 PRE-AND POST OP;)
     Route: 042
     Dates: start: 20240425, end: 20241017
  5. PEMBROLIZUMAB [Suspect]
     Active Substance: PEMBROLIZUMAB
     Indication: Oesophageal adenocarcinoma
     Dosage: 200 MILLIGRAM, EVERY 3 WEEKS (200 MG FLAT DOSE. IV, D1/D22/D43 PRE-AND POST OP, AFTERWARDS D1 Q3W;)
     Route: 042
     Dates: start: 20240425, end: 20241010
  6. TRASTUZUMAB [Suspect]
     Active Substance: TRASTUZUMAB
     Indication: Oesophageal adenocarcinoma
     Dosage: 462 MILLIGRAM, EVERY 3 WEEKS (D1: 8 MG/KG. IV: 6 MG/KG IV D22/D43 PRE-AND POST OP, AFTERWARDS 6 MG/K
     Route: 042
     Dates: start: 20240425, end: 20241010

REACTIONS (7)
  - Pancytopenia [Recovered/Resolved]
  - Pleural effusion [Recovered/Resolved]
  - General physical health deterioration [Recovered/Resolved]
  - Infection [Recovered/Resolved]
  - Diarrhoea [Recovered/Resolved]
  - Frequent bowel movements [Recovered/Resolved]
  - Off label use [Unknown]

NARRATIVE: CASE EVENT DATE: 20241023
